FAERS Safety Report 16037822 (Version 2)
Quarter: 2019Q2

REPORT INFORMATION
  Report Type: Spontaneous
  Country: DE (occurrence: DE)
  Receive Date: 20190305
  Receipt Date: 20190403
  Transmission Date: 20190711
  Serious: Yes (Other)
  Sender: FDA-Public Use
  Company Number: PHHY2019DE047814

PATIENT
  Sex: Female
  Weight: 51 kg

DRUGS (1)
  1. SANDOSTATIN LAR DEPOT [Suspect]
     Active Substance: OCTREOTIDE ACETATE
     Indication: NEUROENDOCRINE TUMOUR
     Dosage: 20 MG, QMO
     Route: 065
     Dates: start: 201812

REACTIONS (7)
  - Paralysis [Unknown]
  - Headache [Unknown]
  - Movement disorder [Recovered/Resolved]
  - Wrong technique in product usage process [Unknown]
  - Sciatica [Recovered/Resolved]
  - Gait inability [Unknown]
  - Musculoskeletal pain [Not Recovered/Not Resolved]

NARRATIVE: CASE EVENT DATE: 201812
